FAERS Safety Report 7981997-X (Version None)
Quarter: 2011Q4

REPORT INFORMATION
  Report Type: 
  Country: None (occurrence: None)
  Receive Date: 20111213
  Receipt Date: 20111202
  Transmission Date: 20120403
  Serious: Yes (Death)
  Sender: FDA-Public Use
  Company Number: ADR-2011-11723

PATIENT
  Age: 67 Year
  Sex: Male

DRUGS (4)
  1. BACLOFEN [Suspect]
     Indication: PAIN
     Dosage: 76.58MCG/DAY
  2. BACLOFEN [Suspect]
     Indication: BLADDER DISORDER
     Dosage: 76.58MCG/DAY
  3. DILAUDID 2.0MG/ML [Concomitant]
  4. BUPIVACAINE 30.0MG/ML [Concomitant]

REACTIONS (2)
  - METASTATIC CARCINOMA OF THE BLADDER [None]
  - NEOPLASM PROGRESSION [None]
